FAERS Safety Report 7096798-7 (Version None)
Quarter: 2010Q4

REPORT INFORMATION
  Report Type: 
  Country: None (occurrence: None)
  Receive Date: 20101103
  Receipt Date: 20101026
  Transmission Date: 20110411
  Serious: Yes (Other)
  Sender: FDA-Public Use
  Company Number: 2010MA003959

PATIENT
  Age: 55 Year
  Sex: Female

DRUGS (2)
  1. TRIAMCINOLONE ACETONIDE [Suspect]
     Indication: TRIGGER FINGER
  2. LIDOCAINE [Concomitant]

REACTIONS (14)
  - ANTIBIOTIC RESISTANT STAPHYLOCOCCUS TEST POSITIVE [None]
  - CULTURE TISSUE SPECIMEN POSITIVE [None]
  - ERYTHEMA [None]
  - INDURATION [None]
  - INJECTION SITE DISCOLOURATION [None]
  - INJECTION SITE SWELLING [None]
  - INSOMNIA [None]
  - ISCHAEMIA [None]
  - NECROTISING FASCIITIS [None]
  - OEDEMA PERIPHERAL [None]
  - PAIN IN EXTREMITY [None]
  - PURULENCE [None]
  - SKIN WARM [None]
  - TENDERNESS [None]
